FAERS Safety Report 5623267-0 (Version None)
Quarter: 2008Q1

REPORT INFORMATION
  Report Type: 
  Country: None (occurrence: None)
  Receive Date: 20080206
  Receipt Date: 20080128
  Transmission Date: 20080703
  Serious: Yes (Other)
  Sender: FDA-Public Use
  Company Number: 2008AP000305

PATIENT
  Age: 29 Year
  Sex: Female

DRUGS (9)
  1. PAROXETINE HCL [Suspect]
     Dosage: PO;QD; ORAL_LIQ;PO;QD
     Route: 048
     Dates: start: 20010109
  2. PAROXETINE HCL [Suspect]
     Dosage: PO;QD; ORAL_LIQ;PO;QD
     Route: 048
     Dates: start: 20030106
  3. PAROXETINE HCL [Suspect]
     Dosage: PO;QD; ORAL_LIQ;PO;QD
     Route: 048
     Dates: start: 20030530
  4. PAROXETINE HCL [Suspect]
     Dosage: PO;QD; ORAL_LIQ;PO;QD
     Route: 048
     Dates: start: 20050304
  5. CITALOPRAM HYDROBROMIDE [Concomitant]
  6. DIAZEPAM [Concomitant]
  7. HYDROXYZINE [Concomitant]
  8. MIRTZAPINE         ( MIRTAZAPINE) [Concomitant]
  9. FLUOXETINE HYDROCHLORIDE               (FLUOXETINE HYDROICHLORIDE) [Concomitant]

REACTIONS (4)
  - ADVERSE EVENT [None]
  - DRUG WITHDRAWAL SYNDROME [None]
  - LOSS OF CONSCIOUSNESS [None]
  - SOCIAL AVOIDANT BEHAVIOUR [None]
